FAERS Safety Report 12919776 (Version 1)
Quarter: 2016Q4

REPORT INFORMATION
  Report Type: Spontaneous
  Country: US (occurrence: US)
  Receive Date: 20161108
  Receipt Date: 20161108
  Transmission Date: 20170207
  Serious: No
  Sender: FDA-Public Use
  Company Number: US-PFIZER INC-2016516232

PATIENT
  Sex: Male

DRUGS (2)
  1. LYRICA [Suspect]
     Active Substance: PREGABALIN
     Indication: NEUROPATHY PERIPHERAL
     Dosage: 2 DF, UNK
     Dates: end: 201611
  2. LYRICA [Suspect]
     Active Substance: PREGABALIN
     Dosage: 1 UNK, UNK
     Dates: start: 201611

REACTIONS (4)
  - Intentional product misuse [Unknown]
  - Lethargy [Unknown]
  - Asthenia [Unknown]
  - Paraesthesia [Unknown]

NARRATIVE: CASE EVENT DATE: 201611
